FAERS Safety Report 12456196 (Version 2)
Quarter: 2017Q4

REPORT INFORMATION
  Report Type: Spontaneous
  Country: IT (occurrence: IT)
  Receive Date: 20160610
  Receipt Date: 20171002
  Transmission Date: 20180320
  Serious: Yes (Death, Other)
  Sender: FDA-Public Use
  Company Number: IT-TEVA-666624ACC

PATIENT
  Age: 64 Year
  Sex: Female

DRUGS (8)
  1. IRINOTECAN [Suspect]
     Active Substance: IRINOTECAN
     Indication: COLON CANCER
     Dates: start: 20130501
  2. AFLIBERCEPT [Suspect]
     Active Substance: AFLIBERCEPT
     Indication: COLON CANCER
     Dates: start: 20130501
  3. CETUXIMAB. [Concomitant]
     Active Substance: CETUXIMAB
     Indication: COLON CANCER
  4. CAPECITABINE. [Concomitant]
     Active Substance: CAPECITABINE
     Indication: COLON CANCER
  5. FLUOROURACIL. [Suspect]
     Active Substance: FLUOROURACIL
     Indication: COLON CANCER
     Dates: start: 20130501
  6. FOLINIC ACID [Suspect]
     Active Substance: LEUCOVORIN
     Indication: COLON CANCER
     Dates: start: 20130501
  7. HEPARIN [Concomitant]
     Active Substance: HEPARIN SODIUM
     Indication: THROMBOSIS PROPHYLAXIS
  8. OXALIPLATIN. [Concomitant]
     Active Substance: OXALIPLATIN
     Indication: COLON CANCER

REACTIONS (10)
  - Deep vein thrombosis [Unknown]
  - Tooth loss [Unknown]
  - Purulent discharge [Unknown]
  - Diarrhoea [Unknown]
  - Osteonecrosis of jaw [Recovering/Resolving]
  - Periodontitis [Unknown]
  - Condition aggravated [Unknown]
  - Periodontal disease [Unknown]
  - Stomatitis [Unknown]
  - Cyclic neutropenia [Unknown]
